FAERS Safety Report 26206242 (Version 1)
Quarter: 2025Q4

REPORT INFORMATION
  Report Type: Spontaneous
  Country: US (occurrence: US)
  Receive Date: 20251229
  Receipt Date: 20251229
  Transmission Date: 20260118
  Serious: Yes (Life-Threatening, Hospitalization, Other)
  Sender: RECKITT BENCKISER
  Company Number: US-INDIVIOR US-INDV-152730-2024

PATIENT

DRUGS (17)
  1. SUBOXONE [Suspect]
     Active Substance: BUPRENORPHINE HYDROCHLORIDE\NALOXONE HYDROCHLORIDE
     Indication: Drug use disorder
     Dosage: 24 MILLIGRAM, QD
     Route: 060
     Dates: start: 201609
  2. SUBOXONE [Suspect]
     Active Substance: BUPRENORPHINE HYDROCHLORIDE\NALOXONE HYDROCHLORIDE
     Dosage: ABUSED A PIECE OF SUBOXONE
     Route: 065
     Dates: start: 201705, end: 201705
  3. SUBOXONE [Suspect]
     Active Substance: BUPRENORPHINE HYDROCHLORIDE\NALOXONE HYDROCHLORIDE
     Dosage: ABUSED SUBOXONE
     Route: 065
     Dates: start: 201709
  4. BUPRENORPHINE\NALOXONE [Suspect]
     Active Substance: BUPRENORPHINE\NALOXONE
     Indication: Drug use disorder
     Dosage: 16 MILLIGRAM, QD
     Route: 060
     Dates: start: 201905
  5. XANAX [Suspect]
     Active Substance: ALPRAZOLAM
     Indication: Post-traumatic stress disorder
     Dosage: UNK
     Route: 065
     Dates: start: 201709
  6. LYRICA [Suspect]
     Active Substance: PREGABALIN
     Indication: Product used for unknown indication
     Dosage: UNK
     Route: 065
  7. TORADOL [Concomitant]
     Active Substance: KETOROLAC TROMETHAMINE
     Indication: Inflammation
     Dosage: 10 MILLIGRAM, TID
     Route: 048
  8. NORFLEX [Concomitant]
     Active Substance: ORPHENADRINE CITRATE
     Indication: Muscle spasms
     Dosage: 100 MILLIGRAM, BID
     Route: 048
  9. NORCO [Concomitant]
     Active Substance: ACETAMINOPHEN\HYDROCODONE BITARTRATE
     Indication: Pain
     Dosage: 1 TAB
     Route: 048
  10. ACETAMINOPHEN [Concomitant]
     Active Substance: ACETAMINOPHEN
     Indication: Product used for unknown indication
     Dosage: 650 MILLIGRAM, PRN
     Route: 048
  11. COLACE [Concomitant]
     Active Substance: DOCUSATE SODIUM
     Indication: Product used for unknown indication
     Dosage: 100 MILLIGRAM, Q12H
     Route: 048
  12. FLAGYL [Concomitant]
     Active Substance: METRONIDAZOLE\METRONIDAZOLE HYDROCHLORIDE
     Indication: Product used for unknown indication
     Dosage: 500 MG/100 ML, Q8H
     Route: 042
  13. LORAZEPAM [Concomitant]
     Active Substance: LORAZEPAM
     Indication: Anxiety
     Dosage: 2 MILLIGRAM PER MILLILITRE, Q6H
     Route: 042
  14. MEROPENEM [Concomitant]
     Active Substance: MEROPENEM
     Indication: Product used for unknown indication
     Dosage: 1000 MILLIGRAM, Q8H
     Route: 042
  15. ONDANSETRON [Concomitant]
     Active Substance: ONDANSETRON
     Indication: Product used for unknown indication
     Dosage: 2 MILLIGRAM PER MILLILITRE, Q4H
     Route: 042
  16. ENOXAPARIN [Concomitant]
     Active Substance: ENOXAPARIN
     Indication: Product used for unknown indication
     Dosage: UNK
     Route: 058
  17. MUCINEX [Concomitant]
     Active Substance: GUAIFENESIN
     Indication: Product used for unknown indication
     Dosage: 600 MILLIGRAM
     Route: 048

REACTIONS (12)
  - Acute kidney injury [Recovered/Resolved]
  - Rhabdomyolysis [Recovered/Resolved]
  - Pneumonia aspiration [Recovered/Resolved]
  - Systemic inflammatory response syndrome [Recovered/Resolved]
  - Overdose [Recovered/Resolved]
  - Toxicity to various agents [Recovered/Resolved]
  - Influenza [Recovered/Resolved]
  - Paraesthesia [Unknown]
  - Dental caries [Not Recovered/Not Resolved]
  - Tooth erosion [Not Recovered/Not Resolved]
  - Fall [Recovered/Resolved]
  - Substance abuse [Recovered/Resolved]

NARRATIVE: CASE EVENT DATE: 20161014
